FAERS Safety Report 7036924-9 (Version None)
Quarter: 2010Q4

REPORT INFORMATION
  Report Type: 
  Country: None (occurrence: None)
  Receive Date: 20101011
  Receipt Date: 20101007
  Transmission Date: 20110411
  Serious: Yes (Life-Threatening)
  Sender: FDA-Public Use
  Company Number: IT-ASTRAZENECA-2010SE47226

PATIENT
  Age: 9 Week
  Weight: 1.4 kg

DRUGS (7)
  1. PROPOFOL [Suspect]
     Indication: LASER THERAPY
     Route: 042
  2. PROPOFOL [Suspect]
     Dosage: 8 MG/KG/HOUR
     Route: 042
  3. PROPOFOL [Suspect]
     Dosage: 6 MG/KG/HOUR
     Route: 042
  4. REMIFENTANIL [Concomitant]
     Indication: LASER THERAPY
     Dosage: 0.75 MCG.KG/MIN
     Route: 042
  5. REMIFENTANIL [Concomitant]
     Dosage: 0.5 MCG.KG/MIN
     Route: 042
  6. REMIFENTANIL [Concomitant]
     Dosage: 0.15 MCG.KG/MIN
     Route: 042
  7. ATROPINE [Concomitant]

REACTIONS (2)
  - OVERDOSE [None]
  - PROPOFOL INFUSION SYNDROME [None]
